FAERS Safety Report 5995750-X (Version None)
Quarter: 2008Q4

REPORT INFORMATION
  Report Type: 
  Country: None (occurrence: None)
  Receive Date: 20081212
  Receipt Date: 20071203
  Transmission Date: 20090506
  Serious: Yes (Other)
  Sender: FDA-Public Use
  Company Number: JP-PFIZER INC-2008037502

PATIENT

DRUGS (2)
  1. MIGLITOL [Suspect]
     Indication: DIABETES MELLITUS
     Dosage: 75 MG, 1X/DAY
     Route: 048
     Dates: start: 20071114, end: 20071130
  2. GLIBENCLAMIDE [Concomitant]
     Dosage: 2.5 MG, UNK
     Route: 048
     Dates: start: 20050212

REACTIONS (3)
  - EYELID OEDEMA [None]
  - HYPERTENSION [None]
  - OEDEMA PERIPHERAL [None]
